FAERS Safety Report 6872072-6 (Version None)
Quarter: 2010Q3

REPORT INFORMATION
  Report Type: 
  Country: None (occurrence: None)
  Receive Date: 20100723
  Receipt Date: 20100715
  Transmission Date: 20110219
  Serious: Yes (Other)
  Sender: FDA-Public Use
  Company Number: CA-PFIZER INC-2010069309

PATIENT
  Age: 57 Year
  Sex: Female
  Weight: 90.703 kg

DRUGS (1)
  1. LIPITOR [Suspect]
     Indication: BLOOD CHOLESTEROL
     Dosage: 10 MG, 1X/DAY
     Dates: start: 20061130

REACTIONS (2)
  - MUSCLE SPASMS [None]
  - OSTEOARTHRITIS [None]
